FAERS Safety Report 11813783 (Version 1)
Quarter: 2015Q4

REPORT INFORMATION
  Report Type: Spontaneous
  Country: US (occurrence: US)
  Receive Date: 20151209
  Receipt Date: 20151209
  Transmission Date: 20160305
  Serious: Yes (Death)
  Sender: FDA-Public Use
  Company Number: US-PFIZER INC-2015410067

PATIENT
  Sex: Female

DRUGS (1)
  1. IBRANCE [Suspect]
     Active Substance: PALBOCICLIB
     Indication: OESOPHAGEAL CARCINOMA
     Dosage: UNK

REACTIONS (3)
  - Product use issue [Unknown]
  - Oesophageal carcinoma [Fatal]
  - Disease progression [Fatal]
